FAERS Safety Report 21722487 (Version 2)
Quarter: 2023Q1

REPORT INFORMATION
  Report Type: Spontaneous
  Country: US (occurrence: None)
  Receive Date: 20221213
  Receipt Date: 20230109
  Transmission Date: 20230418
  Serious: Yes (Hospitalization, Other)
  Sender: FDA-Public Use
  Company Number: 2022A398827

PATIENT
  Age: 20649 Day
  Sex: Male
  Weight: 81.6 kg

DRUGS (66)
  1. NEXIUM 24HR [Suspect]
     Active Substance: ESOMEPRAZOLE MAGNESIUM
     Route: 048
  2. PRILOSEC OTC [Suspect]
     Active Substance: OMEPRAZOLE MAGNESIUM
     Route: 048
  3. PREVACID [Suspect]
     Active Substance: LANSOPRAZOLE
     Indication: Gastrooesophageal reflux disease
     Route: 065
     Dates: start: 200409, end: 200506
  4. PROTONIX [Suspect]
     Active Substance: PANTOPRAZOLE SODIUM
     Indication: Gastrooesophageal reflux disease
     Route: 065
     Dates: start: 201007, end: 201205
  5. PROTONIX [Suspect]
     Active Substance: PANTOPRAZOLE SODIUM
     Indication: Gastrooesophageal reflux disease
     Dosage: GENERIC
     Route: 065
     Dates: start: 201110, end: 201609
  6. PROTONIX [Suspect]
     Active Substance: PANTOPRAZOLE SODIUM
     Indication: Gastrooesophageal reflux disease
     Route: 048
     Dates: start: 20111004
  7. CARDIZEM [Concomitant]
     Active Substance: DILTIAZEM HYDROCHLORIDE
     Indication: Blood pressure abnormal
  8. CLONIDINE [Concomitant]
     Active Substance: CLONIDINE
     Indication: Blood pressure abnormal
  9. TRAMADOL [Concomitant]
     Active Substance: TRAMADOL
     Indication: Pain
  10. METHADONE [Concomitant]
     Active Substance: METHADONE HYDROCHLORIDE
     Indication: Pain
  11. FLUTICASONE [Concomitant]
     Active Substance: FLUTICASONE
     Indication: Multiple allergies
  12. ASPIRIN [Concomitant]
     Active Substance: ASPIRIN
  13. GABAPENTIN [Concomitant]
     Active Substance: GABAPENTIN
     Indication: Pain
  14. ROPINIROLE [Concomitant]
     Active Substance: ROPINIROLE
     Indication: Restless legs syndrome
  15. CHORIONIC GONADOTROPIN [Concomitant]
     Active Substance: CHORIOGONADOTROPIN ALFA
  16. TESTOSTERONE CYPIONATE [Concomitant]
     Active Substance: TESTOSTERONE CYPIONATE
  17. LEVAQUIN [Concomitant]
     Active Substance: LEVOFLOXACIN
  18. MACRODANTIN [Concomitant]
     Active Substance: NITROFURANTOIN
  19. DIOVAN [Concomitant]
     Active Substance: VALSARTAN
  20. ISOSORBIDE MONONITRATE [Concomitant]
     Active Substance: ISOSORBIDE MONONITRATE
  21. CARISOPRODOL [Concomitant]
     Active Substance: CARISOPRODOL
  22. ATROVENT [Concomitant]
     Active Substance: IPRATROPIUM BROMIDE
  23. NORFLEX [Concomitant]
     Active Substance: ORPHENADRINE CITRATE
  24. BYSTOLIC [Concomitant]
     Active Substance: NEBIVOLOL HYDROCHLORIDE
  25. LAMICTAL [Concomitant]
     Active Substance: LAMOTRIGINE
  26. NORVASC [Concomitant]
     Active Substance: AMLODIPINE BESYLATE
  27. ZANTAC [Concomitant]
     Active Substance: RANITIDINE HYDROCHLORIDE
  28. DIGOXIN [Concomitant]
     Active Substance: DIGOXIN
  29. NIASPAN [Concomitant]
     Active Substance: NIACIN
  30. LASIX [Concomitant]
     Active Substance: FUROSEMIDE
  31. METOPROLOL [Concomitant]
     Active Substance: METOPROLOL
  32. OPTIVAR [Concomitant]
     Active Substance: AZELASTINE HYDROCHLORIDE
  33. COLACE [Concomitant]
     Active Substance: DOCUSATE SODIUM
  34. ENOXAPARIN SODIUM [Concomitant]
     Active Substance: ENOXAPARIN SODIUM
  35. SPIRONOLACTONE [Concomitant]
     Active Substance: SPIRONOLACTONE
  36. CYCLOBENZAPRINE [Concomitant]
     Active Substance: CYCLOBENZAPRINE
  37. ROPINIROLE [Concomitant]
     Active Substance: ROPINIROLE
  38. TIOTROPIUM BROMIDE/FORMOTEROL FUMARATE [Concomitant]
  39. HUMALOG [Concomitant]
     Active Substance: INSULIN LISPRO
  40. TOPAMAX [Concomitant]
     Active Substance: TOPIRAMATE
  41. DILAUDID [Concomitant]
     Active Substance: HYDROMORPHONE HYDROCHLORIDE
  42. HYDROXYZINE [Concomitant]
     Active Substance: HYDROXYZINE HYDROCHLORIDE
  43. ONDANSETRON [Concomitant]
     Active Substance: ONDANSETRON
  44. MIRALAX [Concomitant]
     Active Substance: POLYETHYLENE GLYCOL 3350
  45. PRAVASTATIN [Concomitant]
     Active Substance: PRAVASTATIN
  46. DIPHENHYDRAMINE [Concomitant]
     Active Substance: DIPHENHYDRAMINE
  47. MOMETASONE [Concomitant]
     Active Substance: MOMETASONE
  48. PIPERACILLIN [Concomitant]
     Active Substance: PIPERACILLIN
  49. TAMSULOSIN [Concomitant]
     Active Substance: TAMSULOSIN
  50. VANCOMYCIN [Concomitant]
     Active Substance: VANCOMYCIN
  51. HYOSCYAMINE SULFATE [Concomitant]
     Active Substance: HYOSCYAMINE SULFATE
  52. ALBUTEROL [Concomitant]
     Active Substance: ALBUTEROL
  53. FLONASE [Concomitant]
     Active Substance: FLUTICASONE PROPIONATE
  54. FEXOFENADINE [Concomitant]
     Active Substance: FEXOFENADINE HYDROCHLORIDE
  55. BUDESONIDE [Concomitant]
     Active Substance: BUDESONIDE
  56. AMITRIPTYLINE [Concomitant]
     Active Substance: AMITRIPTYLINE
  57. SYMBICORT [Concomitant]
     Active Substance: BUDESONIDE\FORMOTEROL FUMARATE DIHYDRATE
  58. LORATADINE [Concomitant]
     Active Substance: LORATADINE
  59. MORPHINE SULFATE [Concomitant]
     Active Substance: MORPHINE SULFATE
  60. METHADONE [Concomitant]
     Active Substance: METHADONE HYDROCHLORIDE
  61. ULTRACET [Concomitant]
     Active Substance: ACETAMINOPHEN\TRAMADOL HYDROCHLORIDE
  62. VICODIN [Concomitant]
     Active Substance: ACETAMINOPHEN\HYDROCODONE BITARTRATE
  63. SAVELLA [Concomitant]
     Active Substance: MILNACIPRAN HYDROCHLORIDE
  64. NEBIVOLOL [Concomitant]
     Active Substance: NEBIVOLOL
  65. FAMOTIDINE [Concomitant]
     Active Substance: FAMOTIDINE
  66. OXYCONTIN [Concomitant]
     Active Substance: OXYCODONE HYDROCHLORIDE

REACTIONS (3)
  - Acute kidney injury [Not Recovered/Not Resolved]
  - Chronic kidney disease [Not Recovered/Not Resolved]
  - Renal failure [Unknown]

NARRATIVE: CASE EVENT DATE: 20140128
